FAERS Safety Report 4708602-X (Version None)
Quarter: 2005Q3

REPORT INFORMATION
  Report Type: 
  Country: None (occurrence: None)
  Receive Date: 20050706
  Receipt Date: 20050627
  Transmission Date: 20060218
  Serious: Yes (Death)
  Sender: FDA-Public Use
  Company Number: USA-2005-0018914

PATIENT
  Age: 72 Year
  Sex: Female

DRUGS (5)
  1. OXYCONTIN [Suspect]
     Indication: PAIN
     Dosage: 20 MG, Q12H, ORAL
     Route: 048
     Dates: start: 20041207
  2. OXYCODONE (OXYCODONE) [Concomitant]
  3. LASIX [Concomitant]
  4. AMBIEN [Concomitant]
  5. CHEMOTHERAPY [Concomitant]

REACTIONS (3)
  - DRUG INEFFECTIVE [None]
  - METASTATIC NEOPLASM [None]
  - VOMITING [None]
